FAERS Safety Report 25115441 (Version 3)
Quarter: 2025Q2

REPORT INFORMATION
  Report Type: Report from Study
  Country: US (occurrence: US)
  Receive Date: 20250324
  Receipt Date: 20250506
  Transmission Date: 20250717
  Serious: Yes (Other)
  Sender: BEIGENE
  Company Number: US-BEIGENE-BGN-2025-003549

PATIENT
  Age: 79 Year
  Weight: 80.227 kg

DRUGS (5)
  1. BRUKINSA [Suspect]
     Active Substance: ZANUBRUTINIB
     Indication: Chronic lymphocytic leukaemia
     Dosage: 160 MILLIGRAM, BID
  2. BRUKINSA [Suspect]
     Active Substance: ZANUBRUTINIB
     Dosage: 160 MILLIGRAM, BID
  3. BRUKINSA [Suspect]
     Active Substance: ZANUBRUTINIB
     Dosage: 160 MILLIGRAM, BID
  4. BRUKINSA [Suspect]
     Active Substance: ZANUBRUTINIB
     Dosage: 80 MILLIGRAM, BID
  5. ENTECAVIR [Concomitant]
     Active Substance: ENTECAVIR

REACTIONS (8)
  - Dermatitis bullous [Unknown]
  - Contusion [Recovered/Resolved]
  - Dry skin [Unknown]
  - Skin fissures [Unknown]
  - Cellulitis [Recovered/Resolved]
  - Skin ulcer [Unknown]
  - Skin discolouration [Unknown]
  - Blood immunoglobulin G abnormal [Unknown]
